FAERS Safety Report 10067713 (Version 1)
Quarter: 2014Q2

REPORT INFORMATION
  Report Type: Spontaneous
  Country: US (occurrence: None)
  Receive Date: 20140408
  Receipt Date: 20140408
  Transmission Date: 20141212
  Serious: Yes (Other)
  Sender: FDA-Public Use
  Company Number: None

PATIENT
  Age: 71 Year
  Sex: Female
  Weight: 81 kg

DRUGS (1)
  1. RITUXIMAB [Suspect]
     Dosage: 5 ML WERE ADMINISTERED ON 4/1/14 AND 5 ML WERE ADMINISTERED ON 4/2/2014.  DUE TO THE SEVERITY OF EVENT RITIXIMAB HAS BEEN DISCONNECTED.
     Dates: start: 20140401, end: 20140402

REACTIONS (4)
  - Chest pain [None]
  - Dyspnoea [None]
  - Hypotension [None]
  - Infusion related reaction [None]
